FAERS Safety Report 5948818-8 (Version None)
Quarter: 2008Q4

REPORT INFORMATION
  Report Type: 
  Country: None (occurrence: None)
  Receive Date: 20081021
  Receipt Date: 20080428
  Transmission Date: 20090506
  Serious: Yes (Other)
  Sender: FDA-Public Use
  Company Number: HQWYE511223MAY06

PATIENT
  Age: 66 Year
  Sex: Female

DRUGS (4)
  1. PREMARIN [Suspect]
     Indication: MENOPAUSAL SYMPTOMS
  2. ESTRATEST [Suspect]
     Indication: MENOPAUSAL SYMPTOMS
  3. MEDROXYPROGESTERONE [Suspect]
     Indication: MENOPAUSAL SYMPTOMS
  4. PROVERA [Suspect]
     Indication: MENOPAUSAL SYMPTOMS

REACTIONS (1)
  - BREAST CANCER [None]
